FAERS Safety Report 9473229 (Version 2)
Quarter: 2013Q3

REPORT INFORMATION
  Report Type: Spontaneous
  Country: US (occurrence: US)
  Receive Date: 20130823
  Receipt Date: 20130823
  Transmission Date: 20140515
  Serious: No
  Sender: FDA-Public Use
  Company Number: US-BRISTOL-MYERS SQUIBB COMPANY-18799395

PATIENT
  Age: 25 Year
  Sex: Male

DRUGS (1)
  1. SPRYCEL [Suspect]
     Indication: CHRONIC MYELOID LEUKAEMIA
     Dosage: DRUG STOPPED ON; 6MAR-2013
     Dates: start: 201210, end: 201303

REACTIONS (1)
  - Gynaecomastia [Recovering/Resolving]
